FAERS Safety Report 16046917 (Version 1)
Quarter: 2019Q1

REPORT INFORMATION
  Report Type: Spontaneous
  Country: US (occurrence: US)
  Receive Date: 20190307
  Receipt Date: 20190307
  Transmission Date: 20190418
  Serious: No
  Sender: FDA-Public Use
  Company Number: US-PFIZER INC-2019098325

PATIENT
  Age: 63 Year
  Sex: Male

DRUGS (1)
  1. SONATA [Suspect]
     Active Substance: ZALEPLON
     Dosage: UNK

REACTIONS (3)
  - Headache [Unknown]
  - Abdominal pain upper [Unknown]
  - Drug hypersensitivity [Unknown]
